FAERS Safety Report 7009263-X (Version None)
Quarter: 2010Q3

REPORT INFORMATION
  Report Type: 
  Country: None (occurrence: None)
  Receive Date: 20100923
  Receipt Date: 20100921
  Transmission Date: 20110219
  Serious: Yes (Other)
  Sender: FDA-Public Use
  Company Number: GB-BRISTOL-MYERS SQUIBB COMPANY-15296734

PATIENT
  Age: 74 Year
  Sex: Male

DRUGS (9)
  1. SAXAGLIPTIN [Suspect]
     Indication: DIABETES MELLITUS
     Route: 048
     Dates: start: 20100201, end: 20100913
  2. ATENOLOL [Concomitant]
  3. BETAHISTINE [Concomitant]
  4. CLOPIDOGREL BISULFATE [Concomitant]
  5. FENOFIBRATE [Concomitant]
  6. IRBESARTAN [Concomitant]
  7. LERCANIDIPINE [Concomitant]
  8. METFORMIN [Concomitant]
  9. REPAGLINIDE [Concomitant]

REACTIONS (3)
  - ARTHRITIS [None]
  - PSORIASIS [None]
  - RASH [None]
